FAERS Safety Report 7866852-8 (Version None)
Quarter: 2011Q4

REPORT INFORMATION
  Report Type: 
  Country: None (occurrence: None)
  Receive Date: 20111028
  Receipt Date: 20111018
  Transmission Date: 20120403
  Serious: Yes (Hospitalization)
  Sender: FDA-Public Use
  Company Number: US-JNJFOC-20111008184

PATIENT
  Age: 61 Year
  Sex: Female
  Weight: 113.4 kg

DRUGS (5)
  1. INSULIN [Concomitant]
     Indication: PRODUCT USED FOR UNKNOWN INDICATION
     Route: 065
  2. NEOSPORIN [Suspect]
     Indication: PROPHYLAXIS
     Dosage: END OF A FINGER'S WORTH
     Route: 061
     Dates: start: 19960101
  3. NEOSPORIN [Suspect]
     Indication: RASH
     Dosage: END OF A FINGER'S WORTH
     Route: 061
     Dates: start: 19960101
  4. NEOSPORIN [Suspect]
     Indication: THERMAL BURN
     Dosage: END OF A FINGER'S WORTH
     Route: 061
     Dates: start: 19960101
  5. METFORMIN HCL [Concomitant]
     Indication: PRODUCT USED FOR UNKNOWN INDICATION
     Route: 065

REACTIONS (5)
  - DYSPNOEA [None]
  - HYPERSENSITIVITY [None]
  - PHARYNGEAL OEDEMA [None]
  - OFF LABEL USE [None]
  - SWELLING FACE [None]
